FAERS Safety Report 21925459 (Version 1)
Quarter: 2023Q1

REPORT INFORMATION
  Report Type: Spontaneous
  Country: US (occurrence: None)
  Receive Date: 20230127
  Receipt Date: 20230127
  Transmission Date: 20230417
  Serious: Yes (Hospitalization)
  Sender: FDA-Public Use
  Company Number: None

PATIENT
  Age: 12 Year
  Sex: Male

DRUGS (18)
  1. ALBUTEROL SULFATE [Suspect]
     Active Substance: ALBUTEROL SULFATE
     Indication: Cystic fibrosis
     Dosage: 108(90 BASE)MCG/ACT  INHALATION? ?INHALE 2 PUFFS BY MOUTH EVERY 4 HOURS AS NEEDED FOR WHEEZING
     Route: 055
     Dates: start: 20220402
  2. ALBUTEROL SULFATE [Suspect]
     Active Substance: ALBUTEROL SULFATE
     Dosage: OTHER QUANTITY : 2 PUFFS;?FREQUENCY : AS NEEDED;?
     Route: 048
  3. AMOX/POT CLAV [Concomitant]
  4. BETHANECHOL [Concomitant]
     Active Substance: BETHANECHOL
  5. BISACODYL [Concomitant]
     Active Substance: BISACODYL
  6. BUDES/FORMOT [Concomitant]
  7. CAYSTON INH [Concomitant]
  8. CETIRIZINE [Concomitant]
     Active Substance: CETIRIZINE HYDROCHLORIDE
  9. COMPLETE FORM D3000 CHEW ORANGE [Concomitant]
  10. COMPLETE FORM PROBIOTIC [Concomitant]
  11. CREON [Concomitant]
     Active Substance: PANCRELIPASE AMYLASE\PANCRELIPASE LIPASE\PANCRELIPASE PROTEASE
  12. FLUCONAZOLE [Concomitant]
     Active Substance: FLUCONAZOLE
  13. FLUTICASONE [Concomitant]
     Active Substance: FLUTICASONE
  14. MONTELUKAST [Concomitant]
     Active Substance: MONTELUKAST SODIUM
  15. POLYETHYLENE GLYCOLS [Concomitant]
     Active Substance: POLYETHYLENE GLYCOLS
  16. PULMOZYME [Concomitant]
     Active Substance: DORNASE ALFA
  17. SALINE DEEP SEA NASAL SPRAY [Concomitant]
  18. SODIUM CHLORIDE [Concomitant]
     Active Substance: SODIUM CHLORIDE

REACTIONS (2)
  - Cystic fibrosis [None]
  - Condition aggravated [None]

NARRATIVE: CASE EVENT DATE: 20230101
